FAERS Safety Report 25768478 (Version 4)
Quarter: 2025Q4

REPORT INFORMATION
  Report Type: Spontaneous
  Country: US (occurrence: US)
  Receive Date: 20250905
  Receipt Date: 20251214
  Transmission Date: 20260117
  Serious: No
  Sender: PFIZER
  Company Number: US-PFIZER INC-202500176153

PATIENT
  Age: 55 Year
  Sex: Female

DRUGS (1)
  1. ELELYSO [Suspect]
     Active Substance: TALIGLUCERASE ALFA
     Dosage: 60U/KG, EVERY TWO WEEKS

REACTIONS (5)
  - Pain [Unknown]
  - Asthenia [Unknown]
  - Disturbance in attention [Unknown]
  - Illness [Unknown]
  - Scar [Unknown]
